FAERS Safety Report 18912134 (Version 1)
Quarter: 2021Q1

REPORT INFORMATION
  Report Type: Spontaneous
  Country: US (occurrence: US)
  Receive Date: 20210219
  Receipt Date: 20210219
  Transmission Date: 20210420
  Serious: No
  Sender: FDA-Public Use
  Company Number: US-SA-2021SA052261

PATIENT
  Age: 51 Year
  Sex: Male

DRUGS (3)
  1. NAPROXEN. [Concomitant]
     Active Substance: NAPROXEN
  2. DUPIXENT [Suspect]
     Active Substance: DUPILUMAB
     Indication: NASAL POLYPS
     Dosage: UNK
     Route: 058
     Dates: start: 20200325
  3. FLUTICASONE. [Concomitant]
     Active Substance: FLUTICASONE

REACTIONS (2)
  - Product dose omission issue [Unknown]
  - Adverse drug reaction [Not Recovered/Not Resolved]
